FAERS Safety Report 9914682 (Version 1)
Quarter: 2014Q1

REPORT INFORMATION
  Report Type: Spontaneous
  Country: US (occurrence: US)
  Receive Date: 20140220
  Receipt Date: 20140220
  Transmission Date: 20141002
  Serious: Yes (Hospitalization, Other)
  Sender: FDA-Public Use
  Company Number: US-TEVA-463792USA

PATIENT
  Age: 29 Year
  Sex: Female

DRUGS (1)
  1. DULOXETINE [Suspect]
     Route: 065

REACTIONS (1)
  - Porphyria acute [Recovering/Resolving]
